FAERS Safety Report 7824014-4 (Version None)
Quarter: 2011Q4

REPORT INFORMATION
  Report Type: 
  Country: None (occurrence: None)
  Receive Date: 20111014
  Receipt Date: 20111004
  Transmission Date: 20120403
  Serious: Yes (Death, Hospitalization, Other)
  Sender: FDA-Public Use
  Company Number: AUR-APL-2011-05392

PATIENT
  Age: 78 Year
  Sex: Female

DRUGS (6)
  1. LISINOPRIL AND HYDROCHLOROTHIAZIDE (PRINZIDE/00977901/) [Concomitant]
  2. LERCANIDIPINE 9LERCANIDIPINE) [Concomitant]
  3. GLIPIZIDE [Concomitant]
  4. METFORMIN HCL [Suspect]
     Indication: PRODUCT USED FOR UNKNOWN INDICATION
     Dosage: 2550 MG (850 MG, 1 IN 8 HR),
  5. ACENOCOUMAROL (ACENOCOUMAROL) [Concomitant]
  6. IBUPROFEN [Concomitant]

REACTIONS (9)
  - COMA [None]
  - DEPRESSED LEVEL OF CONSCIOUSNESS [None]
  - VOMITING [None]
  - HAEMODIALYSIS [None]
  - GENERAL PHYSICAL HEALTH DETERIORATION [None]
  - LUNG INFILTRATION [None]
  - MENINGITIS PNEUMOCOCCAL [None]
  - BLOOD POTASSIUM INCREASED [None]
  - BLOOD GLUCOSE INCREASED [None]
